FAERS Safety Report 5752554-0 (Version None)
Quarter: 2008Q2

REPORT INFORMATION
  Report Type: 
  Country: None (occurrence: None)
  Receive Date: 20080529
  Receipt Date: 20080522
  Transmission Date: 20081010
  Serious: Yes (Other)
  Sender: FDA-Public Use
  Company Number: PHHY2008JP08758

PATIENT
  Sex: Male

DRUGS (3)
  1. LUDIOMIL [Suspect]
     Indication: DEPRESSION
     Dosage: UNK
     Route: 048
  2. DEPAS [Concomitant]
     Dosage: UNK
     Route: 048
  3. ALLEGRA [Concomitant]
     Dosage: UNK
     Route: 048

REACTIONS (2)
  - ENDOSCOPY ABNORMAL [None]
  - GASTRIC HAEMORRHAGE [None]
